FAERS Safety Report 12551472 (Version 1)
Quarter: 2016Q3

REPORT INFORMATION
  Report Type: Report from Study
  Country: CA (occurrence: CA)
  Receive Date: 20160713
  Receipt Date: 20160713
  Transmission Date: 20161109
  Serious: Yes (Other)
  Sender: FDA-Public Use
  Company Number: CA-AMGEN-CANSL2016039470

PATIENT
  Age: 64 Year
  Sex: Female

DRUGS (3)
  1. EFFEXOR [Concomitant]
     Active Substance: VENLAFAXINE HYDROCHLORIDE
     Dosage: UNK
  2. PROLIA [Suspect]
     Active Substance: DENOSUMAB
     Indication: OSTEOPOROSIS
     Dosage: UNK
     Route: 065
     Dates: start: 20141122
  3. ASA EC [Concomitant]
     Dosage: 80 MG, UNK
     Dates: start: 201604

REACTIONS (7)
  - Cerebrovascular accident [Unknown]
  - Finger deformity [Unknown]
  - Musculoskeletal pain [Recovering/Resolving]
  - Arthritis [Unknown]
  - Pain in extremity [Recovering/Resolving]
  - Drug effect incomplete [Unknown]
  - Osteoarthritis [Unknown]

NARRATIVE: CASE EVENT DATE: 201601
